FAERS Safety Report 6663039-1 (Version None)
Quarter: 2010Q2

REPORT INFORMATION
  Report Type: 
  Country: None (occurrence: None)
  Receive Date: 20100401
  Receipt Date: 20100324
  Transmission Date: 20101027
  Serious: Yes (Hospitalization)
  Sender: FDA-Public Use
  Company Number: TR-ELI_LILLY_AND_COMPANY-TR201003007796

PATIENT
  Age: 55 Year
  Sex: Male

DRUGS (8)
  1. HUMALOG MIX 75/25 [Suspect]
     Indication: DIABETES MELLITUS
     Dosage: 36 U, EACH MORNING
     Route: 058
     Dates: start: 20090701
  2. HUMALOG MIX 75/25 [Suspect]
     Dosage: 34 U, EACH EVENING
     Route: 058
     Dates: start: 20090701
  3. HUMALOG MIX 75/25 [Suspect]
     Dosage: 2 U, AS NEEDED
     Route: 058
  4. SERTRALINE HYDROCHLORIDE [Concomitant]
     Dosage: 50 MG, DAILY (1/D)
  5. ISOSORBIDE MONONITRATE [Concomitant]
     Dosage: 50 MG, DAILY (1/D)
  6. TRENTAL [Concomitant]
     Dosage: 100 MG, DAILY (1/D)
  7. DELIX [Concomitant]
     Dosage: 2.5 MG, DAILY (1/D)
  8. LYRICA [Concomitant]
     Dosage: 75 MG, DAILY (1/D)

REACTIONS (2)
  - COLON OPERATION [None]
  - HYPERGLYCAEMIA [None]
